FAERS Safety Report 14964531 (Version 1)
Quarter: 2018Q2

REPORT INFORMATION
  Report Type: Spontaneous
  Country: US (occurrence: US)
  Receive Date: 20180510
  Receipt Date: 20180510
  Transmission Date: 20180711
  Serious: No
  Sender: FDA-Public Use
  Company Number: None

PATIENT
  Age: 46 Year
  Sex: Female

DRUGS (9)
  1. VITAMIN D2 [Concomitant]
     Active Substance: ERGOCALCIFEROL
  2. OMEPRAZOLE. [Concomitant]
     Active Substance: OMEPRAZOLE
  3. CITRUCEL [Concomitant]
     Active Substance: METHYLCELLULOSE (4000 MPA.S)
  4. BACLOFEN. [Concomitant]
     Active Substance: BACLOFEN
  5. PREDNISONE. [Concomitant]
     Active Substance: PREDNISONE
  6. AMPYRA [Suspect]
     Active Substance: DALFAMPRIDINE
     Indication: MULTIPLE SCLEROSIS
     Route: 048
     Dates: start: 201207
  7. RITUXAN [Concomitant]
     Active Substance: RITUXIMAB
  8. GABAPENTIN. [Concomitant]
     Active Substance: GABAPENTIN
  9. BUPROPION. [Concomitant]
     Active Substance: BUPROPION

REACTIONS (2)
  - Urinary tract infection [None]
  - Asthenia [None]

NARRATIVE: CASE EVENT DATE: 20180425
